FAERS Safety Report 6910068-6 (Version None)
Quarter: 2010Q3

REPORT INFORMATION
  Report Type: 
  Country: None (occurrence: None)
  Receive Date: 20100806
  Receipt Date: 20100727
  Transmission Date: 20110219
  Serious: No
  Sender: FDA-Public Use
  Company Number: US-JNJFOC-20100708827

PATIENT
  Sex: Male
  Weight: 89.81 kg

DRUGS (4)
  1. DURAGESIC-100 [Suspect]
     Indication: INTERVERTEBRAL DISC DISORDER
     Route: 062
  2. DURAGESIC-100 [Suspect]
     Route: 062
  3. DOXEPIN [Concomitant]
     Indication: DEPRESSION
     Route: 048
  4. KLONOPIN [Concomitant]
     Indication: ANXIETY
     Route: 048

REACTIONS (4)
  - ADVERSE EVENT [None]
  - BREAKTHROUGH PAIN [None]
  - PRODUCT PACKAGING QUANTITY ISSUE [None]
  - TREATMENT NONCOMPLIANCE [None]
